FAERS Safety Report 7471811-3 (Version None)
Quarter: 2011Q2

REPORT INFORMATION
  Report Type: 
  Country: None (occurrence: None)
  Receive Date: 20110511
  Receipt Date: 20100520
  Transmission Date: 20111010
  Serious: No
  Sender: FDA-Public Use
  Company Number: A0860615A

PATIENT
  Age: 54 Year
  Sex: Female

DRUGS (4)
  1. TYKERB [Suspect]
     Indication: BREAST CANCER
     Dosage: 5TAB AT NIGHT
     Route: 048
     Dates: start: 20100430
  2. AMLODIPINE BESYLATE [Concomitant]
  3. DIAVAN [Concomitant]
  4. XELODA [Concomitant]

REACTIONS (3)
  - DECREASED APPETITE [None]
  - NAUSEA [None]
  - FATIGUE [None]
